FAERS Safety Report 25950424 (Version 1)
Quarter: 2025Q4

REPORT INFORMATION
  Report Type: Report from Study
  Country: US (occurrence: US)
  Receive Date: 20251023
  Receipt Date: 20251023
  Transmission Date: 20260118
  Serious: Yes (Death)
  Sender: ABBVIE
  Company Number: US-ABBVIE-6511909

PATIENT
  Age: 82 Year
  Sex: Female

DRUGS (20)
  1. VENCLEXTA [Suspect]
     Active Substance: VENETOCLAX
     Indication: Chronic lymphocytic leukaemia recurrent
     Route: 048
  2. TYLENOL [Concomitant]
     Active Substance: ACETAMINOPHEN
     Indication: Product used for unknown indication
     Dosage: TAKE 500 MG BY MOUTH EVERY 4 HOURS AS NEEDED.
     Route: 048
  3. ZOVIRAX [Concomitant]
     Active Substance: ACYCLOVIR
     Indication: Product used for unknown indication
     Dosage: TAKE 1 TABLET (800 MG TOTAL) BY MOUTH 2 TIMES DAILY
     Route: 048
  4. CALCIUM\VITAMIN D [Concomitant]
     Active Substance: CALCIUM\VITAMIN D
     Indication: Product used for unknown indication
     Dosage: TAKE 1 TABLET BY MOUTH ONE TIME DAILY.
     Route: 048
  5. SYNTHROID [Concomitant]
     Active Substance: LEVOTHYROXINE SODIUM
     Indication: Product used for unknown indication
     Dosage: TAKE 1 TABLET (50 MCG TOTAL) BY MOUTH DAILY 1 HOUR BEFORE BREAKFAST.
     Route: 048
  6. LOPRESSOR [Concomitant]
     Active Substance: METOPROLOL TARTRATE
     Indication: Product used for unknown indication
     Dosage: TAKE 1 TABLET BY MOUTH TWO TIMES A DAY
     Route: 048
  7. ZOCOR [Concomitant]
     Active Substance: SIMVASTATIN
     Indication: Product used for unknown indication
     Dosage: TAKE 1 TABLET (20 MG TOTAL) BY MOUTH NIGHTLY
     Route: 048
  8. STIOLTO RESPIMAT [Concomitant]
     Active Substance: OLODATEROL HYDROCHLORIDE\TIOTROPIUM BROMIDE MONOHYDRATE
     Indication: Product used for unknown indication
     Dosage: INHALE 2 PUFFS INTO THE LUNGS DAILY
  9. BACTRIM [Concomitant]
     Active Substance: SULFAMETHOXAZOLE\TRIMETHOPRIM
     Indication: Product used for unknown indication
     Dosage: 400-80 MG TABLET, TAKE 1 TABLET BY MOUTH DAILY.
     Route: 048
  10. VITAMIN D3 [Concomitant]
     Active Substance: CHOLECALCIFEROL
     Indication: Product used for unknown indication
     Dosage: TAKE 1 TABLET (1,000 UNITS TOTAL) BY MOUTH DAILY AT NOON
     Route: 048
  11. Pneumococcal Conjugate [Concomitant]
     Indication: Product used for unknown indication
     Dates: start: 20160620
  12. Pneumococcal Polysaccharide [Concomitant]
     Indication: Product used for unknown indication
     Dates: start: 20201117
  13. Pneumococcal Polysaccharide [Concomitant]
     Indication: Product used for unknown indication
     Dates: start: 20100624
  14. SHINGRIX [Concomitant]
     Active Substance: RECOMBINANT VARICELLA ZOSTER VIRUS (VZV) GLYCOPROTEIN E
     Indication: Product used for unknown indication
     Dates: start: 20200604
  15. SHINGRIX [Concomitant]
     Active Substance: RECOMBINANT VARICELLA ZOSTER VIRUS (VZV) GLYCOPROTEIN E
     Indication: Product used for unknown indication
     Dates: start: 20200224
  16. Moderna COVID-19 Bivalent [Concomitant]
     Indication: Product used for unknown indication
     Dates: start: 20220913
  17. MODERNA COVID-19 VACCINE [Concomitant]
     Active Substance: ELASOMERAN
     Indication: Product used for unknown indication
     Dosage: RED CAP, LIGHT BLUE LABEL) COVID-19 100 MCG/0.5 ML OR 50 MCG/0.25 ML DOSE VACCINE, MRNA, SPIKE PR...
     Dates: start: 20220429
  18. MODERNA COVID-19 VACCINE [Concomitant]
     Active Substance: ELASOMERAN
     Indication: Product used for unknown indication
     Dosage: RED CAP, LIGHT BLUE LABEL) COVID-19 100 MCG/0.5 ML OR 50 MCG/0.25 ML DOSE VACCINE, MRNA, SPIKE PR...
     Dates: start: 20210830
  19. MODERNA COVID-19 VACCINE [Concomitant]
     Active Substance: ELASOMERAN
     Indication: Product used for unknown indication
     Dosage: RED CAP, LIGHT BLUE LABEL) COVID-19 100 MCG/0.5 ML OR 50 MCG/0.25 ML DOSE VACCINE, MRNA, SPIKE PR...
     Dates: start: 20210302
  20. MODERNA COVID-19 VACCINE [Concomitant]
     Active Substance: ELASOMERAN
     Indication: Product used for unknown indication
     Dosage: RED CAP, LIGHT BLUE LABEL) COVID-19 100 MCG/0.5 ML OR 50 MCG/0.25 ML DOSE VACCINE, MRNA, SPIKE PR...
     Dates: start: 20210131

REACTIONS (2)
  - Death [Fatal]
  - Off label use [Unknown]

NARRATIVE: CASE EVENT DATE: 20251001
